FAERS Safety Report 7691264-X (Version None)
Quarter: 2011Q3

REPORT INFORMATION
  Report Type: 
  Country: None (occurrence: None)
  Receive Date: 20110818
  Receipt Date: 20110817
  Transmission Date: 20111222
  Serious: Yes (Other)
  Sender: FDA-Public Use
  Company Number: SI-ABBOTT-11P-261-0728144-00

PATIENT
  Sex: Female
  Weight: 2.065 kg

DRUGS (1)
  1. HUMIRA [Suspect]
     Indication: MATERNAL EXPOSURE DURING PREGNANCY
     Route: 064

REACTIONS (3)
  - PREMATURE BABY [None]
  - MATERNAL EXPOSURE DURING PREGNANCY [None]
  - NORMAL NEWBORN [None]
